FAERS Safety Report 11087569 (Version 1)
Quarter: 2015Q2

REPORT INFORMATION
  Report Type: Spontaneous
  Country: US (occurrence: None)
  Receive Date: 20150501
  Receipt Date: 20150501
  Transmission Date: 20150821
  Serious: No
  Sender: FDA-Public Use
  Company Number: None

PATIENT
  Age: 42 Year
  Sex: Female
  Weight: 102.06 kg

DRUGS (5)
  1. LEVOTIROXINE [Concomitant]
     Active Substance: LEVOTHYROXINE
  2. BIOTINE [Concomitant]
     Active Substance: LACTOPEROXIDASE BOVINE\LYSOZYME HYDROCHLORIDE
  3. ENALAPRIL [Concomitant]
     Active Substance: ENALAPRIL
  4. VITAMIN D [Concomitant]
     Active Substance: CHOLECALCIFEROL
  5. INVOKANA [Suspect]
     Active Substance: CANAGLIFLOZIN
     Indication: DIABETES MELLITUS
     Dosage: 1 PILL  ONCE DAILY TAKEN BY MOUTH
     Route: 048
     Dates: start: 20150317, end: 20150403

REACTIONS (12)
  - Constipation [None]
  - Anxiety [None]
  - Micturition urgency [None]
  - Abdominal pain upper [None]
  - Dry mouth [None]
  - Cold sweat [None]
  - Urinary tract infection [None]
  - Thirst [None]
  - Pallor [None]
  - Blood glucose increased [None]
  - Depression [None]
  - Headache [None]

NARRATIVE: CASE EVENT DATE: 20150316
